FAERS Safety Report 5519618-8 (Version None)
Quarter: 2007Q4

REPORT INFORMATION
  Report Type: 
  Country: None (occurrence: None)
  Receive Date: 20071116
  Receipt Date: 20071109
  Transmission Date: 20080405
  Serious: Yes (Other)
  Sender: FDA-Public Use
  Company Number: DE-ROCHE-530695

PATIENT
  Age: 57 Year
  Sex: Female

DRUGS (6)
  1. XELODA [Suspect]
     Route: 065
  2. AVASTIN [Suspect]
     Dosage: EVERY OTHER WEEK
     Route: 065
  3. ERBITUX [Suspect]
     Dosage: LOADING DOSE: 400 MG/M2 MILLIGRAM(S)/SQ. METER , 1 SEPARATE DOSE IN WEEK ONE
     Route: 041
     Dates: start: 20060801
  4. ERBITUX [Suspect]
     Dosage: WEEKLY
     Route: 041
  5. XELOX [Suspect]
     Route: 065
  6. FOLFIRI [Suspect]
     Dosage: IRONOTECAN 180 MG/M2 AS 90 MINUTE IV INFUSION, FA 400 MG/M2 AS 2 HOUR IV INFUSION, 5-FU 400 MG/M2 A+
     Route: 042

REACTIONS (8)
  - ABDOMINAL PAIN UPPER [None]
  - ALOPECIA [None]
  - ASCITES [None]
  - DISEASE PROGRESSION [None]
  - FATIGUE [None]
  - JAUNDICE [None]
  - OEDEMA PERIPHERAL [None]
  - SKIN TOXICITY [None]
